FAERS Safety Report 4339526-8 (Version None)
Quarter: 2004Q2

REPORT INFORMATION
  Report Type: 
  Country: None (occurrence: None)
  Receive Date: 20040415
  Receipt Date: 20040331
  Transmission Date: 20050107
  Serious: Yes (Life-Threatening)
  Sender: FDA-Public Use
  Company Number: DE-BRISTOL-MYERS SQUIBB COMPANY-12553202

PATIENT
  Age: 65 Year
  Sex: Male

DRUGS (3)
  1. CETUXIMAB [Suspect]
     Indication: COLORECTAL CANCER METASTATIC
     Dosage: INFUSION STARTED AT 13:25H.
     Route: 042
     Dates: start: 20040331, end: 20040331
  2. RANITIDINE [Concomitant]
     Indication: PREMEDICATION
     Dosage: RECEIVED ONE AMPULE AT 12:45H
     Dates: start: 20040331, end: 20040331
  3. TAVEGIL [Concomitant]
     Indication: PREMEDICATION
     Dosage: RECEIVED ONE AMPULE AT 12:45H.
     Dates: start: 20040331, end: 20040331

REACTIONS (4)
  - ANAPHYLACTIC REACTION [None]
  - DYSPNOEA [None]
  - URTICARIA [None]
  - VERTIGO [None]
